FAERS Safety Report 7094016-7 (Version None)
Quarter: 2010Q4

REPORT INFORMATION
  Report Type: 
  Country: None (occurrence: None)
  Receive Date: 20101101
  Receipt Date: 20101025
  Transmission Date: 20110411
  Serious: Yes (Other)
  Sender: FDA-Public Use
  Company Number: 011613

PATIENT
  Age: 14 Month
  Sex: Male

DRUGS (3)
  1. BUSULFEX [Suspect]
     Dosage: INTRAVENOUS
     Route: 042
     Dates: start: 20070901
  2. FLUDARABINE PHOSPHATE [Concomitant]
  3. CYCLOPHOSPHAMIDE [Concomitant]

REACTIONS (3)
  - GRAFT LOSS [None]
  - GRAFT VERSUS HOST DISEASE [None]
  - RECURRENT CANCER [None]
